FAERS Safety Report 15104686 (Version 1)
Quarter: 2018Q3

REPORT INFORMATION
  Report Type: Report from Study
  Country: CA (occurrence: CA)
  Receive Date: 20180703
  Receipt Date: 20180703
  Transmission Date: 20181010
  Serious: Yes (Hospitalization, Other)
  Sender: FDA-Public Use
  Company Number: PHHY2017CA123666

PATIENT
  Age: 76 Year
  Sex: Male

DRUGS (3)
  1. SANDOSTATIN [Suspect]
     Active Substance: OCTREOTIDE ACETATE
     Indication: CARCINOID TUMOUR
     Dosage: ONCE/SINGLE
     Route: 058
     Dates: start: 20170118, end: 20170118
  2. SANDOSTATIN LAR DEPOT [Suspect]
     Active Substance: OCTREOTIDE ACETATE
     Indication: CARCINOID TUMOUR
     Dosage: 30 MG, QMO
     Route: 030
     Dates: start: 20170125
  3. INSULIN [Concomitant]
     Active Substance: INSULIN NOS
     Indication: DIABETES MELLITUS
     Route: 058

REACTIONS (10)
  - Oedema peripheral [Unknown]
  - Malignant neoplasm progression [Unknown]
  - Nausea [Recovering/Resolving]
  - Body temperature increased [Unknown]
  - Needle issue [Unknown]
  - Body temperature decreased [Unknown]
  - Herpes zoster [Unknown]
  - Pyrexia [Unknown]
  - Hepatic vein thrombosis [Unknown]
  - Blood pressure increased [Unknown]

NARRATIVE: CASE EVENT DATE: 20170324
